FAERS Safety Report 6921973-9 (Version None)
Quarter: 2010Q3

REPORT INFORMATION
  Report Type: 
  Country: None (occurrence: None)
  Receive Date: 20100812
  Receipt Date: 20100731
  Transmission Date: 20110219
  Serious: Yes (Hospitalization)
  Sender: FDA-Public Use
  Company Number: SA-ELI_LILLY_AND_COMPANY-SA201006006488

PATIENT
  Age: 68 Year
  Sex: Female

DRUGS (2)
  1. FORTEO [Suspect]
     Indication: OSTEOPOROSIS
     Dosage: 20 UG, DAILY (1/D)
     Route: 058
     Dates: start: 20100501
  2. CALCIUM [Concomitant]
     Indication: CALCIUM DEFICIENCY
     Dosage: UNK, UNKNOWN
     Route: 065

REACTIONS (8)
  - AMNESIA [None]
  - COMA [None]
  - DECREASED APPETITE [None]
  - DIABETES MELLITUS [None]
  - HYPERTENSION [None]
  - MENINGITIS [None]
  - PYREXIA [None]
  - TREMOR [None]
